FAERS Safety Report 8610899-0 (Version None)
Quarter: 2012Q3

REPORT INFORMATION
  Report Type: 
  Country: None (occurrence: None)
  Receive Date: 20120822
  Receipt Date: 20120813
  Transmission Date: 20120928
  Serious: Yes (Life-Threatening)
  Sender: FDA-Public Use
  Company Number: FR-BRISTOL-MYERS SQUIBB COMPANY-16855579

PATIENT
  Age: 52 Year
  Sex: Female

DRUGS (2)
  1. AVASTIN [Suspect]
     Dosage: 1 DF = 25MG/ML, CONCENTRATE FOR SOLUTION FOR INFUSION
     Dates: start: 20120201, end: 20120606
  2. TAXOL [Suspect]
     Dates: start: 20120201, end: 20120606

REACTIONS (1)
  - CHEST WALL NECROSIS [None]
